FAERS Safety Report 8313077-8 (Version None)
Quarter: 2012Q2

REPORT INFORMATION
  Report Type: 
  Country: None (occurrence: None)
  Receive Date: 20120426
  Receipt Date: 20120420
  Transmission Date: 20120825
  Serious: Yes (Hospitalization)
  Sender: FDA-Public Use
  Company Number: IT-PFIZER INC-2012099254

PATIENT
  Age: 32 Year
  Sex: Female

DRUGS (5)
  1. EFFEXOR XR [Suspect]
     Indication: PERSONALITY DISORDER
     Dosage: 150 MG, 1X/DAY
     Route: 048
  2. CLONAZEPAM [Suspect]
     Dosage: 30 UNITS DOSE TOTAL
     Route: 048
     Dates: start: 20120412, end: 20120412
  3. SEROQUEL [Suspect]
     Dosage: 10 UNITS DOSE TOTAL
     Route: 048
     Dates: start: 20120412, end: 20120412
  4. SEROQUEL [Suspect]
     Indication: PERSONALITY DISORDER
     Dosage: 300 MG, 1X/DAY
     Route: 048
  5. EFFEXOR XR [Suspect]
     Dosage: 14 UNITS DOSE TOTAL
     Route: 048
     Dates: start: 20120412, end: 20120412

REACTIONS (4)
  - SOPOR [None]
  - HYPOTENSION [None]
  - CONFUSIONAL STATE [None]
  - INTENTIONAL OVERDOSE [None]
